FAERS Safety Report 5117836-4 (Version None)
Quarter: 2006Q3

REPORT INFORMATION
  Report Type: 
  Country: None (occurrence: None)
  Receive Date: 20060926
  Receipt Date: 20060921
  Transmission Date: 20061208
  Serious: Yes (Death, Hospitalization)
  Sender: FDA-Public Use
  Company Number: DAV-AE-MTX-06-004

PATIENT
  Age: 73 Year
  Sex: Female

DRUGS (6)
  1. METHOTREXATE [Suspect]
     Indication: RHEUMATOID ARTHRITIS
     Dosage: 7.5 MG PO QD
     Dates: start: 20040621, end: 20040629
  2. PREDNISOLONE [Concomitant]
  3. FOLIC ACID [Concomitant]
  4. MORPHINE SULFATE [Concomitant]
  5. ROFECOXIB [Concomitant]
  6. NITRAZEPAM [Concomitant]

REACTIONS (7)
  - DRUG ADMINISTRATION ERROR [None]
  - HAEMOGLOBIN DECREASED [None]
  - HERPES ZOSTER [None]
  - MOUTH ULCERATION [None]
  - PETECHIAE [None]
  - PLATELET COUNT DECREASED [None]
  - WHITE BLOOD CELL COUNT DECREASED [None]
